FAERS Safety Report 6333673-7 (Version None)
Quarter: 2009Q3

REPORT INFORMATION
  Report Type: 
  Country: None (occurrence: None)
  Receive Date: 20090829
  Receipt Date: 20090520
  Transmission Date: 20100115
  Serious: No
  Sender: FDA-Public Use
  Company Number: US-ABBOTT-09P-163-0572943-00

PATIENT
  Sex: Female
  Weight: 74.91 kg

DRUGS (9)
  1. SIMCOR [Suspect]
     Indication: BLOOD CHOLESTEROL INCREASED
     Dates: start: 20090512, end: 20090519
  2. METFORMIN HCL [Concomitant]
     Indication: DRUG USE FOR UNKNOWN INDICATION
  3. GLIMIPRIDE [Concomitant]
     Indication: DRUG USE FOR UNKNOWN INDICATION
  4. JANUVIA [Concomitant]
     Indication: DRUG USE FOR UNKNOWN INDICATION
  5. TRICOR [Concomitant]
     Indication: DRUG USE FOR UNKNOWN INDICATION
  6. LOVAZA [Concomitant]
     Indication: DRUG USE FOR UNKNOWN INDICATION
  7. NEXIUM [Concomitant]
     Indication: DRUG USE FOR UNKNOWN INDICATION
  8. EXFORGE [Concomitant]
     Indication: DRUG USE FOR UNKNOWN INDICATION
  9. LOVASTATIN [Concomitant]
     Indication: DRUG USE FOR UNKNOWN INDICATION
     Dates: start: 20090519

REACTIONS (2)
  - BLOOD GLUCOSE INCREASED [None]
  - FLUSHING [None]
